FAERS Safety Report 17872173 (Version 2)
Quarter: 2020Q3

REPORT INFORMATION
  Report Type: Spontaneous
  Country: US (occurrence: US)
  Receive Date: 20200608
  Receipt Date: 20200710
  Transmission Date: 20201103
  Serious: No
  Sender: FDA-Public Use
  Company Number: US-AMGEN-USASP2020090465

PATIENT
  Age: 52 Year
  Sex: Female

DRUGS (3)
  1. REPATHA [Suspect]
     Active Substance: EVOLOCUMAB
     Dosage: 140 MILLIGRAM, Q2WK
     Route: 065
  2. REPATHA [Suspect]
     Active Substance: EVOLOCUMAB
     Indication: BLOOD CHOLESTEROL ABNORMAL
     Dosage: 140 MILLIGRAM, Q2WK
     Route: 065
     Dates: start: 2020
  3. REPATHA [Suspect]
     Active Substance: EVOLOCUMAB
     Indication: MIGRAINE
     Dosage: 140 MILLIGRAM, Q2WK
     Route: 065

REACTIONS (2)
  - Accidental exposure to product [Unknown]
  - Injection site induration [Unknown]

NARRATIVE: CASE EVENT DATE: 20200604
